FAERS Safety Report 23937676 (Version 1)
Quarter: 2024Q2

REPORT INFORMATION
  Report Type: Spontaneous
  Country: US (occurrence: US)
  Receive Date: 20240604
  Receipt Date: 20240604
  Transmission Date: 20240716
  Serious: No
  Sender: FDA-Public Use
  Company Number: US-AZURITY PHARMACEUTICALS, INC.-US-2024AZR000109

PATIENT
  Sex: Male
  Weight: 59.9 kg

DRUGS (2)
  1. TESTOSTERONE CYPIONATE [Suspect]
     Active Substance: TESTOSTERONE CYPIONATE
     Indication: Delayed puberty
     Dosage: 50 MG, EVERY 28 DAYS
     Route: 030
     Dates: start: 20211124
  2. TESTOSTERONE CYPIONATE [Suspect]
     Active Substance: TESTOSTERONE CYPIONATE
     Dosage: 0.375 ML (75 MG) EVERY 14 DAYS
     Route: 030

REACTIONS (2)
  - Poor quality product administered [Unknown]
  - Product deposit [Unknown]
